FAERS Safety Report 8887678 (Version 1)
Quarter: 2012Q4

REPORT INFORMATION
  Report Type: 
  Country: DE (occurrence: US)
  Receive Date: 20121105
  Receipt Date: 20121105
  Transmission Date: 20130627
  Serious: Yes (Other)
  Sender: FDA-Public Use
  Company Number: DE-009507513-1211USA001259

PATIENT
  Age: 67 Year
  Sex: Female
  Weight: 66 kg

DRUGS (1)
  1. ALENDRONATE SODIUM [Suspect]
     Dosage: 70 mg, qw
     Route: 048

REACTIONS (1)
  - Osteonecrosis of jaw [Unknown]
